FAERS Safety Report 6954278-0 (Version None)
Quarter: 2010Q3

REPORT INFORMATION
  Report Type: 
  Country: None (occurrence: None)
  Receive Date: 20100829
  Receipt Date: 20100713
  Transmission Date: 20110219
  Serious: No
  Sender: FDA-Public Use
  Company Number: US-ABBOTT-10P-163-0657394-00

PATIENT
  Sex: Female
  Weight: 62.652 kg

DRUGS (1)
  1. NIASPAN [Suspect]
     Indication: BLOOD CHOLESTEROL INCREASED
     Dates: start: 20100611, end: 20100711

REACTIONS (10)
  - ABDOMINAL PAIN UPPER [None]
  - DIZZINESS [None]
  - FLUSHING [None]
  - GENERALISED ERYTHEMA [None]
  - LOCAL SWELLING [None]
  - PRURITUS [None]
  - SKIN BURNING SENSATION [None]
  - TENSION HEADACHE [None]
  - TREMOR [None]
  - VISION BLURRED [None]
